FAERS Safety Report 7294400-2 (Version None)
Quarter: 2011Q1

REPORT INFORMATION
  Report Type: 
  Country: None (occurrence: None)
  Receive Date: 20110215
  Receipt Date: 20110209
  Transmission Date: 20110831
  Serious: Yes (Other)
  Sender: FDA-Public Use
  Company Number: US-AMGEN-USASP2011007859

PATIENT
  Age: 74 Year
  Sex: Female

DRUGS (9)
  1. VITAMIN B12                        /00056201/ [Concomitant]
  2. CITRACAL [Concomitant]
  3. CENTRUM SILVER                     /01292501/ [Concomitant]
     Dosage: UNK
  4. PROLIA [Suspect]
     Indication: OSTEOPOROSIS POSTMENOPAUSAL
     Dates: start: 20101107
  5. LUTEIN [Concomitant]
     Dosage: UNK
  6. LEXAPRO [Concomitant]
  7. BONIVA [Concomitant]
     Dates: end: 20101107
  8. BENADRYL [Concomitant]
  9. VITAMIN A [Concomitant]

REACTIONS (2)
  - MOBILITY DECREASED [None]
  - INCLUSION BODY MYOSITIS [None]
